FAERS Safety Report 5351053-8 (Version None)
Quarter: 2007Q2

REPORT INFORMATION
  Report Type: 
  Country: None (occurrence: None)
  Receive Date: 20070608
  Receipt Date: 20070607
  Transmission Date: 20071010
  Serious: Yes (Other)
  Sender: FDA-Public Use
  Company Number: DE-BRISTOL-MYERS SQUIBB COMPANY-13802228

PATIENT

DRUGS (1)
  1. IFOSFAMIDE [Suspect]
     Indication: NEOPLASM MALIGNANT

REACTIONS (3)
  - GLOMERULAR FILTRATION RATE ABNORMAL [None]
  - GROWTH RETARDATION [None]
  - RENAL TUBULAR DISORDER [None]
